FAERS Safety Report 13887407 (Version 1)
Quarter: 2017Q3

REPORT INFORMATION
  Report Type: Spontaneous
  Country: US (occurrence: US)
  Receive Date: 20170821
  Receipt Date: 20170821
  Transmission Date: 20171127
  Serious: No
  Sender: FDA-Public Use
  Company Number: US-ROCHE-771432

PATIENT
  Age: 46 Year
  Sex: Female
  Weight: 56.2 kg

DRUGS (13)
  1. ACTEMRA [Suspect]
     Active Substance: TOCILIZUMAB
     Indication: RHEUMATOID ARTHRITIS
     Dosage: FORM: INFUSION; STARTING DOSE: 4MG/KG
     Route: 042
  2. METHOTREXATE. [Concomitant]
     Active Substance: METHOTREXATE
     Indication: RHEUMATOID ARTHRITIS
     Dosage: DOSE: 0.8 CC; STRENGTH; 25MG/ML
     Route: 058
  3. FOLIC ACID. [Concomitant]
     Active Substance: FOLIC ACID
     Dosage: MEDICATION REPORTED: FOR METHOTREXATE USE
     Route: 048
  4. AMITRIPTYLINE [Concomitant]
     Active Substance: AMITRIPTYLINE
     Indication: SOMNOLENCE
     Dosage: INDICATION REPORTED: SLEEP AND PAIN, FREQUENCY: QHS23
     Route: 048
  5. INSULIN [Concomitant]
     Active Substance: INSULIN NOS
     Route: 058
  6. REGLAN [Concomitant]
     Active Substance: METOCLOPRAMIDE HYDROCHLORIDE
     Dosage: AS NEEEDED
     Route: 048
  7. ZYRTEC [Concomitant]
     Active Substance: CETIRIZINE HYDROCHLORIDE
     Dosage: FREQUENCY: DAILY
     Route: 048
  8. VOLTAREN [Concomitant]
     Active Substance: DICLOFENAC SODIUM
     Route: 061
  9. LEVOTHYROXINE. [Concomitant]
     Active Substance: LEVOTHYROXINE
     Route: 048
  10. PHENERGAN [Concomitant]
     Active Substance: PROMETHAZINE HYDROCHLORIDE
     Route: 048
  11. SYNTHROID [Concomitant]
     Active Substance: LEVOTHYROXINE SODIUM
     Indication: BASEDOW^S DISEASE
     Dosage: FORM: PILL, SATURDAY: 1/2 PILL, SUNDAY: NO PILL.
     Route: 065
  12. ACETAMINOPHEN. [Concomitant]
     Active Substance: ACETAMINOPHEN
     Route: 048
  13. RESTASIS [Concomitant]
     Active Substance: CYCLOSPORINE
     Route: 065

REACTIONS (2)
  - Fatigue [Recovered/Resolved]
  - Rash erythematous [Recovering/Resolving]

NARRATIVE: CASE EVENT DATE: 20110328
